FAERS Safety Report 9036855 (Version 1)
Quarter: 2012Q4

REPORT INFORMATION
  Report Type: Spontaneous
  Country: US (occurrence: None)
  Receive Date: 20121217
  Receipt Date: 20121217
  Transmission Date: 20130627
  Serious: Yes (Other)
  Sender: FDA-Public Use
  Company Number: 12-028

PATIENT
  Age: 4 Year
  Sex: Female

DRUGS (3)
  1. ALLERGENIC EXTRACT [Suspect]
     Indication: IMMUNOSUPPRESSANT DRUG THERAPY
     Dates: start: 20120831
  2. FLOVENT HSA (FLUTICASONE PROPIONATE) [Concomitant]
  3. SINGULAR (MONTELUKAST SODIUM) [Concomitant]

REACTIONS (3)
  - Local reaction [None]
  - Swelling [None]
  - Erythema [None]
